FAERS Safety Report 5084350-4 (Version None)
Quarter: 2006Q3

REPORT INFORMATION
  Report Type: 
  Country: None (occurrence: None)
  Receive Date: 20060821
  Receipt Date: 20051209
  Transmission Date: 20061208
  Serious: Yes (Hospitalization)
  Sender: FDA-Public Use
  Company Number: PHBS2005JP18337

PATIENT
  Age: 82 Year
  Sex: Female

DRUGS (4)
  1. DIOVAN [Suspect]
     Indication: HYPERTENSION
     Dosage: 80 MG/DAY
     Route: 048
     Dates: start: 20050809, end: 20051209
  2. MEXITIL [Concomitant]
     Dosage: 300 MG, UNK
     Route: 048
  3. BASEN [Concomitant]
     Dosage: 9 MG, UNK
     Route: 048
  4. MAGLAX [Concomitant]
     Dosage: 990 MG, UNK
     Route: 048

REACTIONS (6)
  - ANTIBODY TEST POSITIVE [None]
  - BLISTER [None]
  - ERYTHEMA [None]
  - PEMPHIGUS [None]
  - RASH [None]
  - SKIN EROSION [None]
